FAERS Safety Report 20794499 (Version 1)
Quarter: 2022Q2

REPORT INFORMATION
  Report Type: Spontaneous
  Country: US (occurrence: US)
  Receive Date: 20220506
  Receipt Date: 20220506
  Transmission Date: 20220721
  Serious: No
  Sender: FDA-Public Use
  Company Number: US-BAUSCH-BL-2022-010688

PATIENT
  Sex: Female

DRUGS (1)
  1. NAPHAZOLINE HYDROCHLORIDE\PHENIRAMINE MALEATE [Suspect]
     Active Substance: NAPHAZOLINE HYDROCHLORIDE\PHENIRAMINE MALEATE
     Indication: Eye pruritus
     Route: 065
     Dates: start: 202204

REACTIONS (1)
  - Instillation site pain [Unknown]

NARRATIVE: CASE EVENT DATE: 20220427
